FAERS Safety Report 7973084-1 (Version None)
Quarter: 2011Q4

REPORT INFORMATION
  Report Type: 
  Country: None (occurrence: None)
  Receive Date: 20111209
  Receipt Date: 20111128
  Transmission Date: 20120403
  Serious: Yes (Hospitalization)
  Sender: FDA-Public Use
  Company Number: DE-007041

PATIENT
  Age: 70 Year
  Sex: Male
  Weight: 72 kg

DRUGS (3)
  1. FIRMAGON [Suspect]
     Indication: PROSTATE CANCER METASTATIC
     Dosage: (240 MG 1 X SUBCUTANEOUS) , (80 MG 1X/MONTH)
     Route: 058
     Dates: start: 20101201, end: 20101201
  2. DOCETAXEL [Suspect]
     Indication: PROSTATE CANCER
     Dosage: (75 MG/M2 MILLIGRAM/SQ)
     Dates: start: 20110112, end: 20110223
  3. PREDNISOLONE /00016201/ [Concomitant]

REACTIONS (1)
  - INTERSTITIAL LUNG DISEASE [None]
